FAERS Safety Report 7636044-6 (Version None)
Quarter: 2011Q3

REPORT INFORMATION
  Report Type: 
  Country: None (occurrence: None)
  Receive Date: 20110726
  Receipt Date: 20110715
  Transmission Date: 20111222
  Serious: Yes (Hospitalization)
  Sender: FDA-Public Use
  Company Number: US-SANOFI-AVENTIS-2011SA027060

PATIENT
  Age: 62 Year
  Sex: Male
  Weight: 104.32 kg

DRUGS (22)
  1. SOLOSTAR [Suspect]
     Dates: start: 20080101
  2. CARDIZEM [Concomitant]
     Indication: BLOOD PRESSURE
     Dosage: 120 MG IN AM AND 120 MG AT 9:00 PM
  3. LANTUS [Suspect]
     Dosage: DOSE:55 UNIT(S)
     Route: 058
     Dates: start: 20081001
  4. AMARYL [Concomitant]
     Indication: BLOOD GLUCOSE
     Dosage: 4 MG WITH DINNER
  5. ALTACE [Concomitant]
     Indication: BLOOD PRESSURE
     Dosage: 10 MG IN AM AND 10 MG IN PM
  6. LANTUS [Suspect]
     Dosage: DOSE:55 UNIT(S)
     Route: 058
     Dates: start: 20081001
  7. CLONIDINE [Concomitant]
     Indication: BLOOD PRESSURE
     Dosage: 1 PATCH CHANGE WEEKLY
  8. POTASSIUM [Concomitant]
     Dosage: 3  20 MEQ CR TAB
  9. SOLOSTAR [Suspect]
     Dates: start: 20080101
  10. ALL OTHER THERAPEUTIC PRODUCTS [Concomitant]
     Indication: DIURETIC THERAPY
     Dosage: 25/ 37.5 MG
  11. LANOXIN [Concomitant]
     Indication: HEART RATE
     Dosage: .25 AT DINNER
  12. XANAX [Concomitant]
     Indication: PANIC DISORDER
     Dosage: .25 IN AM AND AT  9:00 PM AND AS NEEDED
  13. ALL OTHER THERAPEUTIC PRODUCTS [Concomitant]
     Indication: ASTHMA
     Dosage: 1 PUFF MAINTANCE DOSE
  14. SOLOSTAR [Suspect]
     Indication: TYPE 2 DIABETES MELLITUS
     Dates: start: 20080101
  15. ACTOS [Concomitant]
     Indication: BLOOD GLUCOSE
     Dosage: 30 MG WITH DINNER
  16. FLONASE [Concomitant]
     Dosage: 2 SPRAYS EACH NOSTRIL AT BEDTIME
  17. NORVASC [Concomitant]
     Indication: BLOOD PRESSURE
     Dosage: AT 9:00 PM
  18. ASPIRIN [Concomitant]
  19. CENTRUM [Concomitant]
     Dosage: 1 TABLET
  20. SOLOSTAR [Suspect]
     Dates: start: 20080101
  21. LANTUS [Suspect]
     Dosage: DOSE:55 UNIT(S)
     Route: 058
     Dates: start: 20081001
  22. LANTUS [Suspect]
     Dosage: DOSE:55 UNIT(S)
     Route: 058
     Dates: start: 20081001

REACTIONS (5)
  - MYOCARDIAL INFARCTION [None]
  - BLOOD GLUCOSE INCREASED [None]
  - INCORRECT STORAGE OF DRUG [None]
  - PRODUCT QUALITY ISSUE [None]
  - GLYCOSYLATED HAEMOGLOBIN INCREASED [None]
